FAERS Safety Report 18320608 (Version 3)
Quarter: 2020Q4

REPORT INFORMATION
  Report Type: Spontaneous
  Country: JP (occurrence: JP)
  Receive Date: 20200929
  Receipt Date: 20201130
  Transmission Date: 20210113
  Serious: Yes (Hospitalization, Other)
  Sender: FDA-Public Use
  Company Number: JP-ASTELLAS-2020JP014349

PATIENT
  Age: 9 Decade
  Sex: Male

DRUGS (3)
  1. PREDONINE [Concomitant]
     Active Substance: PREDNISOLONE
     Indication: RHEUMATOID ARTHRITIS
     Dosage: UNK UNK, UNKNOWN FREQ.
     Route: 048
  2. XTANDI [Suspect]
     Active Substance: ENZALUTAMIDE
     Indication: HORMONE-REFRACTORY PROSTATE CANCER
     Route: 048
  3. PREDONINE [Concomitant]
     Active Substance: PREDNISOLONE
     Dosage: UNK UNK, UNKNOWN FREQ.
     Route: 048

REACTIONS (5)
  - Adrenal insufficiency [Recovered/Resolved]
  - Drug-induced liver injury [Recovered/Resolved]
  - Blood alkaline phosphatase increased [Recovered/Resolved]
  - Jaundice [Recovered/Resolved]
  - Decreased appetite [Recovered/Resolved]
